FAERS Safety Report 7359121-6 (Version None)
Quarter: 2011Q1

REPORT INFORMATION
  Report Type: 
  Country: None (occurrence: None)
  Receive Date: 20110317
  Receipt Date: 20110303
  Transmission Date: 20110831
  Serious: Yes (Other)
  Sender: FDA-Public Use
  Company Number: FR-GENENTECH-314574

PATIENT
  Sex: Female

DRUGS (4)
  1. CACIT D3 [Concomitant]
     Indication: PRODUCT USED FOR UNKNOWN INDICATION
     Dosage: UNK
     Dates: start: 20050101
  2. EVISTA [Concomitant]
     Indication: PRODUCT USED FOR UNKNOWN INDICATION
     Dosage: UNK
     Dates: start: 20050101
  3. BLINDED RITUXIMAB [Suspect]
     Dosage: UNK
     Route: 042
     Dates: start: 20090310
  4. BLINDED PLACEBO [Suspect]
     Dosage: UNK
     Route: 042
     Dates: start: 20090310

REACTIONS (1)
  - CERVICAL DYSPLASIA [None]
